FAERS Safety Report 10690911 (Version 1)
Quarter: 2015Q1

REPORT INFORMATION
  Report Type: Report from Study
  Country: US (occurrence: US)
  Receive Date: 20150105
  Receipt Date: 20150105
  Transmission Date: 20150720
  Serious: No
  Sender: FDA-Public Use
  Company Number: US-GLAXOSMITHKLINE-US2014GSK044025

PATIENT
  Sex: Female

DRUGS (3)
  1. FLUTICASONE PROPIONATE+SALMETEROL XINAFOATE [Suspect]
     Active Substance: FLUTICASONE PROPIONATE\SALMETEROL XINAFOATE
     Indication: ASTHMA
     Dosage: UNK, U
  2. NYSTATIN MOUTH WASH [Suspect]
     Active Substance: NYSTATIN
     Indication: CANDIDA INFECTION
     Dosage: UNK, U
     Route: 065
  3. SYMBICORT [Suspect]
     Active Substance: BUDESONIDE\FORMOTEROL FUMARATE DIHYDRATE
     Indication: ASTHMA
     Dosage: UNK, U

REACTIONS (3)
  - Exposure during pregnancy [Unknown]
  - Live birth [Unknown]
  - Candida infection [Unknown]
